FAERS Safety Report 4878353-X (Version None)
Quarter: 2005Q4

REPORT INFORMATION
  Report Type: 
  Country: None (occurrence: None)
  Receive Date: 20051206
  Receipt Date: 20050912
  Transmission Date: 20060501
  Serious: No
  Sender: FDA-Public Use
  Company Number: USA0509107364

PATIENT
  Sex: Female

DRUGS (2)
  1. CYMBALTA [Suspect]
     Indication: BACK PAIN
     Dosage: 60 MG
     Dates: start: 20050817
  2. ESTROGENS CONJUGATED W/PROGESTERONE [Concomitant]

REACTIONS (4)
  - AGITATION [None]
  - DEPRESSION [None]
  - NIGHTMARE [None]
  - PSYCHIATRIC SYMPTOM [None]
